FAERS Safety Report 4317323-7 (Version None)
Quarter: 2004Q1

REPORT INFORMATION
  Report Type: 
  Country: None (occurrence: None)
  Receive Date: 20040312
  Receipt Date: 20040303
  Transmission Date: 20041129
  Serious: Yes (Hospitalization)
  Sender: FDA-Public Use
  Company Number: 001#0#2004-00047

PATIENT
  Age: 90 Year
  Sex: Male

DRUGS (8)
  1. ISOSORBIDE DINITRATE [Suspect]
     Indication: ANGINA PECTORIS
     Dosage: 1.20 MG (10MG 2 IN 1 DAY(S)) ORAL
     Route: 048
     Dates: end: 20030422
  2. DIGITOXIN INJ [Suspect]
     Indication: CARDIAC FAILURE
     Dosage: .07 MG (.07MG 1 IN 1 DAY(S) ORAL
     Route: 048
  3. VERAPAMIL HCL [Suspect]
     Indication: ANGINA PECTORIS
     Dosage: 240 MG (120MG 2 IN 1 DAY(S)) ORAL
     Route: 048
  4. HYDROCHLOROTHIAZIDE [Concomitant]
  5. CLOPIDOGREL (CLOPIDOGREL SULFATE) [Concomitant]
  6. METAMIZOL-SODIUM (METAMIZOLE SODIUM) [Concomitant]
  7. SPIRONOLACTONE [Concomitant]
  8. TORSEMIDE [Concomitant]

REACTIONS (11)
  - ARRHYTHMIA [None]
  - BLOOD GLUCOSE INCREASED [None]
  - BLOOD SODIUM DECREASED [None]
  - BRADYCARDIA [None]
  - CARDIAC FAILURE ACUTE [None]
  - DRUG INTERACTION [None]
  - DRUG LEVEL INCREASED [None]
  - HAEMOGLOBIN DECREASED [None]
  - LUNG INFECTION [None]
  - NAUSEA [None]
  - OVERDOSE [None]
